FAERS Safety Report 7091977-7 (Version None)
Quarter: 2010Q4

REPORT INFORMATION
  Report Type: 
  Country: None (occurrence: None)
  Receive Date: 20101109
  Receipt Date: 20101104
  Transmission Date: 20110411
  Serious: Yes (Hospitalization)
  Sender: FDA-Public Use
  Company Number: AT-CEPHALON-2010005420

PATIENT
  Sex: Female

DRUGS (1)
  1. ACTIQ [Suspect]
     Route: 002
     Dates: start: 20101006

REACTIONS (3)
  - DRUG ADMINISTRATION ERROR [None]
  - PRODUCT PACKAGING ISSUE [None]
  - UNEVALUABLE EVENT [None]
